FAERS Safety Report 9385786 (Version 1)
Quarter: 2013Q3

REPORT INFORMATION
  Report Type: Spontaneous
  Country: US (occurrence: US)
  Receive Date: 20130705
  Receipt Date: 20130705
  Transmission Date: 20140515
  Serious: No
  Sender: FDA-Public Use
  Company Number: US-009507513-1307USA000724

PATIENT
  Sex: Male

DRUGS (4)
  1. ASMANEX TWISTHALER [Suspect]
     Indication: CHRONIC OBSTRUCTIVE PULMONARY DISEASE
     Dosage: UNK
     Route: 055
     Dates: start: 201306, end: 2013
  2. ASMANEX TWISTHALER [Suspect]
     Indication: ASTHMA
  3. SYMBICORT [Concomitant]
     Dosage: UNK, FORMULATION: INHALER
  4. PROVENTIL [Concomitant]
     Dosage: UNK, FORMULATION: INHALER

REACTIONS (4)
  - Product quality issue [Recovering/Resolving]
  - Dyspnoea [Recovering/Resolving]
  - Drug ineffective [Unknown]
  - Underdose [Unknown]
